FAERS Safety Report 25192554 (Version 3)
Quarter: 2025Q2

REPORT INFORMATION
  Report Type: Spontaneous
  Country: JP (occurrence: JP)
  Receive Date: 20250414
  Receipt Date: 20250514
  Transmission Date: 20250717
  Serious: Yes (Death, Hospitalization, Other)
  Sender: NOVARTIS
  Company Number: JP-002147023-NVSJ2025JP004276

PATIENT
  Age: 81 Year
  Sex: Male

DRUGS (2)
  1. CYCLOSPORINE [Suspect]
     Active Substance: CYCLOSPORINE
     Indication: Psoriasis
     Route: 065
  2. PIPERACILLIN SODIUM\TAZOBACTAM SODIUM [Concomitant]
     Active Substance: PIPERACILLIN SODIUM\TAZOBACTAM SODIUM
     Indication: Infection
     Route: 065

REACTIONS (5)
  - Hodgkin^s disease [Fatal]
  - Metastases to lymph nodes [Fatal]
  - Lung neoplasm malignant [Fatal]
  - Transitional cell carcinoma [Fatal]
  - Multiple organ dysfunction syndrome [Fatal]
